FAERS Safety Report 18078575 (Version 1)
Quarter: 2020Q3

REPORT INFORMATION
  Report Type: Spontaneous
  Country: US (occurrence: US)
  Receive Date: 20200727
  Receipt Date: 20200727
  Transmission Date: 20201103
  Serious: Yes (Disabling)
  Sender: FDA-Public Use
  Company Number: None

PATIENT
  Age: 54 Year
  Sex: Male
  Weight: 106.59 kg

DRUGS (1)
  1. ROSUVASTATIN CALCIUM SUBSTITUTED FOR CRESTOR 5MG [Suspect]
     Active Substance: ROSUVASTATIN CALCIUM
     Indication: BLOOD GLUCOSE INCREASED
     Dosage: ?          QUANTITY:5 MG MILLIGRAM(S);?
     Route: 048
     Dates: start: 20200225, end: 20200622

REACTIONS (3)
  - Myalgia [None]
  - Influenza like illness [None]
  - Therapy cessation [None]

NARRATIVE: CASE EVENT DATE: 20200301
